FAERS Safety Report 4871963-5 (Version None)
Quarter: 2005Q4

REPORT INFORMATION
  Report Type: 
  Country: None (occurrence: None)
  Receive Date: 20051230
  Receipt Date: 20051219
  Transmission Date: 20060501
  Serious: Yes (Other)
  Sender: FDA-Public Use
  Company Number: 2005170852

PATIENT
  Sex: Female

DRUGS (3)
  1. ESTRADIOL [Suspect]
     Indication: HORMONE REPLACEMENT THERAPY
     Dosage: SEE IMAGE
     Dates: end: 20051115
  2. ESTRADIOL [Suspect]
     Indication: HORMONE REPLACEMENT THERAPY
     Dosage: SEE IMAGE
     Dates: start: 20030127
  3. SIMVASTATIN [Concomitant]

REACTIONS (4)
  - DYSPNOEA [None]
  - MENOPAUSAL SYMPTOMS [None]
  - PALPITATIONS [None]
  - VENTRICULAR EXTRASYSTOLES [None]
